FAERS Safety Report 22123261 (Version 3)
Quarter: 2023Q1

REPORT INFORMATION
  Report Type: Other
  Country: PK (occurrence: None)
  Receive Date: 20230322
  Receipt Date: 20230330
  Transmission Date: 20230417
  Serious: Yes (Death)
  Sender: FDA-Public Use
  Company Number: PK-ROCHE-3314622

PATIENT
  Age: 69 Year
  Sex: Male

DRUGS (1)
  1. TECENTRIQ [Suspect]
     Active Substance: ATEZOLIZUMAB
     Indication: Small cell lung cancer
     Route: 041
     Dates: start: 20220713

REACTIONS (4)
  - Death [Fatal]
  - Pyrexia [Fatal]
  - Hypotension [Fatal]
  - Somnolence [Fatal]
